FAERS Safety Report 4524913-5 (Version None)
Quarter: 2004Q4

REPORT INFORMATION
  Report Type: 
  Country: None (occurrence: None)
  Receive Date: 20041210
  Receipt Date: 20041124
  Transmission Date: 20050328
  Serious: Yes (Other)
  Sender: FDA-Public Use
  Company Number: CHNY2004CA02170

PATIENT
  Age: 45 Year
  Sex: Female

DRUGS (3)
  1. BUCKLEY'S DM DECONGESTANT(NCH)(DEXTROMETHORPHAN HYDROBROMIDE, PSEUDOEP [Suspect]
     Indication: COUGH
     Dosage: 1 TSP, QD, ORAL
     Route: 048
     Dates: start: 20041123, end: 20041125
  2. METFORMIN HCL [Suspect]
     Dosage: 500 MG, QD
  3. NEOBLOC (METOPROLOL TARTRATE) [Concomitant]

REACTIONS (3)
  - LOSS OF CONSCIOUSNESS [None]
  - SYNCOPE [None]
  - VOMITING [None]
